FAERS Safety Report 14874274 (Version 5)
Quarter: 2020Q2

REPORT INFORMATION
  Report Type: Spontaneous
  Country: RO (occurrence: RO)
  Receive Date: 20180510
  Receipt Date: 20200405
  Transmission Date: 20200713
  Serious: Yes (Hospitalization, Other)
  Sender: FDA-Public Use
  Company Number: RO-PFIZER INC-2018165583

PATIENT
  Age: 31 Year
  Sex: Male
  Weight: 70 kg

DRUGS (4)
  1. CHAMPIX [Suspect]
     Active Substance: VARENICLINE TARTRATE
     Indication: SMOKING CESSATION THERAPY
     Dosage: UNK
     Dates: start: 2010
  2. CHAMPIX [Suspect]
     Active Substance: VARENICLINE TARTRATE
     Dosage: UNK
     Dates: start: 2015
  3. CHAMPIX [Suspect]
     Active Substance: VARENICLINE TARTRATE
     Dosage: AS PER DOCTOR PRESCRIPTION
     Dates: start: 20180101, end: 201804
  4. NICOTINE PATCHES [Concomitant]
     Active Substance: NICOTINE
     Dosage: UNK
     Dates: start: 2015

REACTIONS (22)
  - Sexual dysfunction [Not Recovered/Not Resolved]
  - Loss of libido [Not Recovered/Not Resolved]
  - Mental disorder [Not Recovered/Not Resolved]
  - Memory impairment [Unknown]
  - Nervousness [Unknown]
  - Hyperprolactinaemia [Not Recovered/Not Resolved]
  - Self esteem decreased [Unknown]
  - Erectile dysfunction [Not Recovered/Not Resolved]
  - Mood swings [Not Recovered/Not Resolved]
  - Sleep disorder [Unknown]
  - Therapeutic response unexpected [Unknown]
  - Nausea [Not Recovered/Not Resolved]
  - Constipation [Unknown]
  - Hunger [Unknown]
  - Insomnia [Not Recovered/Not Resolved]
  - Agitation [Unknown]
  - Treatment noncompliance [Unknown]
  - Anhedonia [Not Recovered/Not Resolved]
  - Apathy [Not Recovered/Not Resolved]
  - Depression [Not Recovered/Not Resolved]
  - Disturbance in attention [Unknown]
  - Pre-existing condition improved [Unknown]

NARRATIVE: CASE EVENT DATE: 20150716
